FAERS Safety Report 12283078 (Version 1)
Quarter: 2016Q2

REPORT INFORMATION
  Report Type: Report from Study
  Country: US (occurrence: US)
  Receive Date: 20160419
  Receipt Date: 20160419
  Transmission Date: 20160815
  Serious: No
  Sender: FDA-Public Use
  Company Number: ADR-2015-00882

PATIENT
  Age: 43 Year
  Sex: Male

DRUGS (4)
  1. DILAUDID [Suspect]
     Active Substance: HYDROMORPHONE HYDROCHLORIDE
     Dosage: 3.1004MG/DAY
     Dates: start: 20130912
  2. DILAUDID [Suspect]
     Active Substance: HYDROMORPHONE HYDROCHLORIDE
     Dosage: 2.8041MG/DAY
     Dates: start: 20130604, end: 20130912
  3. COMPOUNDED BACLOFEN [Suspect]
     Active Substance: BACLOFEN
     Dosage: 10.515MCG/DAY
     Dates: start: 20130604, end: 20130912
  4. COMPOUNDED BACLOFEN [Suspect]
     Active Substance: BACLOFEN
     Dosage: 11.627MCG/DAY
     Dates: start: 20130912

REACTIONS (1)
  - Medical device site pain [Recovered/Resolved]

NARRATIVE: CASE EVENT DATE: 20130912
